FAERS Safety Report 20718369 (Version 1)
Quarter: 2022Q2

REPORT INFORMATION
  Report Type: Spontaneous
  Country: US (occurrence: US)
  Receive Date: 20220418
  Receipt Date: 20220418
  Transmission Date: 20220720
  Serious: Yes (Other)
  Sender: FDA-Public Use
  Company Number: US-UCBSA-2021046713

PATIENT
  Sex: Male

DRUGS (1)
  1. NEUPRO [Suspect]
     Active Substance: ROTIGOTINE
     Indication: Parkinson^s disease
     Dosage: UNK, ONCE DAILY (QD)
     Route: 062
     Dates: start: 20150813, end: 20210315

REACTIONS (2)
  - Obsessive-compulsive disorder [Unknown]
  - Gambling disorder [Unknown]
